FAERS Safety Report 9009730 (Version 1)
Quarter: 2013Q1

REPORT INFORMATION
  Report Type: Report from Study
  Country: CA (occurrence: CA)
  Receive Date: 20130110
  Receipt Date: 20130110
  Transmission Date: 20140127
  Serious: Yes (Hospitalization)
  Sender: FDA-Public Use
  Company Number: CA-JNJFOC-20121003042

PATIENT
  Age: 33 Year
  Sex: Male
  Weight: 114 kg

DRUGS (4)
  1. REMICADE [Suspect]
     Indication: CROHN^S DISEASE
     Dosage: 31TH INFUSION
     Route: 042
  2. PREDNISONE [Concomitant]
     Route: 065
  3. SALBUTAMOL [Concomitant]
     Route: 065
  4. FLUTICASONE INHALER [Concomitant]
     Route: 065

REACTIONS (3)
  - Intestinal resection [Unknown]
  - Impaired healing [Recovering/Resolving]
  - Bowel movement irregularity [Unknown]
